FAERS Safety Report 5196169-4 (Version None)
Quarter: 2006Q4

REPORT INFORMATION
  Report Type: 
  Country: None (occurrence: None)
  Receive Date: 20061221
  Receipt Date: 20061101
  Transmission Date: 20070319
  Serious: Yes (Other)
  Sender: FDA-Public Use
  Company Number: 001#2#2006-00469

PATIENT
  Age: 79 Year
  Sex: Male

DRUGS (1)
  1. ALPROSTADIL [Suspect]
     Indication: ERECTILE DYSFUNCTION
     Dosage: 20 MCG (20 MCG 1 IN 1 DAY(S))
     Route: 042
     Dates: start: 20061101, end: 20061101

REACTIONS (4)
  - CHILLS [None]
  - ERYTHEMA [None]
  - OVERDOSE [None]
  - PRIAPISM [None]
